FAERS Safety Report 15333818 (Version 1)
Quarter: 2018Q3

REPORT INFORMATION
  Report Type: Spontaneous
  Country: US (occurrence: US)
  Receive Date: 20180825
  Receipt Date: 20180825
  Transmission Date: 20181010
  Serious: Yes (Disabling)
  Sender: FDA-Public Use
  Company Number: None

PATIENT
  Age: 30 Month
  Sex: Male
  Weight: 13 kg

DRUGS (2)
  1. LYMP?TONE II (HOMEOPATHICS) [Suspect]
     Active Substance: HOMEOPATHICS
  2. VIRU?CHORD (HOMEOPATHIC) [Suspect]
     Active Substance: HOMEOPATHICS

REACTIONS (1)
  - Pyrexia [None]

NARRATIVE: CASE EVENT DATE: 20180823
